FAERS Safety Report 19835329 (Version 1)
Quarter: 2021Q3

REPORT INFORMATION
  Report Type: Spontaneous
  Country: US (occurrence: US)
  Receive Date: 20210916
  Receipt Date: 20210916
  Transmission Date: 20211014
  Serious: No
  Sender: FDA-Public Use
  Company Number: US-SA-2021SA299933

PATIENT
  Age: 58 Year
  Sex: Male

DRUGS (3)
  1. DUPIXENT [Suspect]
     Active Substance: DUPILUMAB
     Indication: DERMATITIS ATOPIC
     Dosage: 300 MG, QOW (300 MG/2ML)
     Route: 058
     Dates: start: 201909, end: 202107
  2. ATENOLOL. [Concomitant]
     Active Substance: ATENOLOL
     Dosage: POWDER
  3. LOVASTATIN. [Concomitant]
     Active Substance: LOVASTATIN
     Dosage: POWDER

REACTIONS (10)
  - Skin haemorrhage [Unknown]
  - Skin fissures [Unknown]
  - Scratch [Unknown]
  - Rash [Unknown]
  - Middle insomnia [Unknown]
  - Pruritus [Unknown]
  - Skin exfoliation [Unknown]
  - Hordeolum [Unknown]
  - Skin weeping [Unknown]
  - Arthritis [Unknown]

NARRATIVE: CASE EVENT DATE: 202103
